FAERS Safety Report 8014830-0 (Version None)
Quarter: 2011Q4

REPORT INFORMATION
  Report Type: 
  Country: None (occurrence: None)
  Receive Date: 20111229
  Receipt Date: 20111224
  Transmission Date: 20120403
  Serious: Yes (Life-Threatening, Hospitalization)
  Sender: FDA-Public Use
  Company Number: US-ROCHE-801383

PATIENT
  Age: 66 Year
  Sex: Female
  Weight: 72.4 kg

DRUGS (3)
  1. AVASTIN [Suspect]
     Indication: NON-SMALL CELL LUNG CANCER
     Dosage: OVER 30-90 MIN ON DAY 1
     Route: 042
  2. CISPLATIN [Suspect]
     Indication: NON-SMALL CELL LUNG CANCER
     Dosage: OVER 60 MIN ON DAY 1
     Route: 042
  3. VINORELBINE TARTRATE [Suspect]
     Indication: NON-SMALL CELL LUNG CANCER
     Dosage: OVER 10 MIN ON DAYS 1 AND 8
     Route: 042

REACTIONS (9)
  - MYOCARDIAL INFARCTION [None]
  - NEUTROPHIL COUNT DECREASED [None]
  - BLOOD CREATININE INCREASED [None]
  - FATIGUE [None]
  - NAUSEA [None]
  - DECREASED APPETITE [None]
  - VOMITING [None]
  - HAEMOGLOBIN DECREASED [None]
  - CARDIAC ARREST [None]
